FAERS Safety Report 14724050 (Version 2)
Quarter: 2018Q2

REPORT INFORMATION
  Report Type: Report from Study
  Country: US (occurrence: US)
  Receive Date: 20180405
  Receipt Date: 20180503
  Transmission Date: 20180711
  Serious: Yes (Hospitalization, Other)
  Sender: FDA-Public Use
  Company Number: US-GILEAD-2018-0330529

PATIENT
  Age: 56 Year
  Sex: Female

DRUGS (3)
  1. AMBRISENTAN [Suspect]
     Active Substance: AMBRISENTAN
     Dosage: 5 MG, UNK
     Route: 065
     Dates: start: 20160217, end: 201607
  2. AMBRISENTAN [Suspect]
     Active Substance: AMBRISENTAN
     Indication: PULMONARY ARTERIAL HYPERTENSION
     Dosage: 10 MG, QD
     Route: 065
     Dates: start: 20160809
  3. ADCIRCA [Concomitant]
     Active Substance: TADALAFIL
     Indication: PULMONARY ARTERIAL HYPERTENSION
     Dosage: 40 MG, QD
     Dates: start: 20170908

REACTIONS (8)
  - Seizure [Recovered/Resolved]
  - Visual impairment [Not Recovered/Not Resolved]
  - Hypersensitivity [Not Recovered/Not Resolved]
  - Asthenopia [Not Recovered/Not Resolved]
  - Fatigue [Not Recovered/Not Resolved]
  - Eye swelling [Not Recovered/Not Resolved]
  - Photophobia [Not Recovered/Not Resolved]
  - Ocular hyperaemia [Not Recovered/Not Resolved]

NARRATIVE: CASE EVENT DATE: 20180325
